FAERS Safety Report 20135261 (Version 1)
Quarter: 2021Q4

REPORT INFORMATION
  Report Type: Spontaneous
  Country: US (occurrence: US)
  Receive Date: 20211201
  Receipt Date: 20211201
  Transmission Date: 20220303
  Serious: Yes (Hospitalization, Other)
  Sender: FDA-Public Use
  Company Number: US-SA-2021SA398723

PATIENT
  Age: 22 Year
  Sex: Male

DRUGS (1)
  1. FEXOFENADINE HYDROCHLORIDE\PSEUDOEPHEDRINE HYDROCHLORIDE [Suspect]
     Active Substance: FEXOFENADINE HYDROCHLORIDE\PSEUDOEPHEDRINE HYDROCHLORIDE
     Dosage: BOLUS

REACTIONS (5)
  - Eosinophilic oesophagitis [Recovered/Resolved]
  - Respiratory distress [Recovered/Resolved]
  - Regurgitation [Recovered/Resolved]
  - Sensation of foreign body [Recovered/Resolved]
  - Hypertension [Recovered/Resolved]
